FAERS Safety Report 11154766 (Version 1)
Quarter: 2015Q2

REPORT INFORMATION
  Report Type: Spontaneous
  Country: GR (occurrence: GR)
  Receive Date: 20150602
  Receipt Date: 20150602
  Transmission Date: 20150821
  Serious: Yes (Hospitalization)
  Sender: FDA-Public Use
  Company Number: GR-ROCHE-1586661

PATIENT
  Age: 39 Year
  Sex: Female
  Weight: 70 kg

DRUGS (4)
  1. MABTHERA [Suspect]
     Active Substance: RITUXIMAB
     Indication: SCLERODERMA
     Dosage: 650MG WEEKLY FOR 4 WEEKS
     Route: 042
     Dates: start: 20150414, end: 20150422
  2. PREZOLON [Concomitant]
     Active Substance: PREDNISOLONE
     Indication: SCLERODERMA
     Route: 048
  3. IDEOS [Concomitant]
     Active Substance: CALCIUM CARBONATE\CHOLECALCIFEROL
     Indication: OSTEOPOROSIS
     Route: 048
  4. ADALAT CC [Concomitant]
     Active Substance: NIFEDIPINE
     Indication: RAYNAUD^S PHENOMENON
     Route: 048

REACTIONS (7)
  - Arthralgia [Recovering/Resolving]
  - Leukopenia [Recovering/Resolving]
  - Temporomandibular joint syndrome [Recovering/Resolving]
  - Product use issue [Unknown]
  - Pyrexia [Recovering/Resolving]
  - Myalgia [Recovering/Resolving]
  - Thrombocytopenia [Recovering/Resolving]

NARRATIVE: CASE EVENT DATE: 20150428
